FAERS Safety Report 5206955-X (Version None)
Quarter: 2007Q1

REPORT INFORMATION
  Report Type: 
  Country: None (occurrence: None)
  Receive Date: 20070105
  Receipt Date: 20070105
  Transmission Date: 20070707
  Serious: No
  Sender: FDA-Public Use
  Company Number: None

PATIENT
  Sex: Female
  Weight: 74.1 kg

DRUGS (3)
  1. TEMOZOLOMIDE [Suspect]
     Dosage: 3420 MG
  2. TEMOZOLOMIDE [Suspect]
  3. TEMOZOLOMIDE [Suspect]

REACTIONS (1)
  - PLATELET COUNT DECREASED [None]
